FAERS Safety Report 13663955 (Version 1)
Quarter: 2017Q2

REPORT INFORMATION
  Report Type: Spontaneous
  Country: US (occurrence: US)
  Receive Date: 20170618
  Receipt Date: 20170618
  Transmission Date: 20170830
  Serious: Yes (Other)
  Sender: FDA-Public Use
  Company Number: None

PATIENT
  Age: 54 Year
  Sex: Male
  Weight: 83.25 kg

DRUGS (1)
  1. PROZAC [Suspect]
     Active Substance: FLUOXETINE HYDROCHLORIDE
     Indication: DEPRESSION
     Dosage: ?          QUANTITY:45 CAPSULE(S);?
     Route: 048
     Dates: start: 20170515, end: 20170606

REACTIONS (6)
  - Anxiety [None]
  - Depression [None]
  - Middle insomnia [None]
  - Product quality issue [None]
  - Sleep disorder [None]
  - Decreased interest [None]

NARRATIVE: CASE EVENT DATE: 20170515
